FAERS Safety Report 8933482 (Version 1)
Quarter: 2012Q4

REPORT INFORMATION
  Report Type: Report from Study
  Country: US (occurrence: US)
  Receive Date: 20121128
  Receipt Date: 20121128
  Transmission Date: 20130627
  Serious: No
  Sender: FDA-Public Use
  Company Number: US-ABBOTT-12P-163-1005280-00

PATIENT
  Sex: Male
  Weight: 77.18 kg

DRUGS (4)
  1. ANDROGEL [Suspect]
     Indication: BLOOD TESTOSTERONE DECREASED
     Dosage: 2 pump actuations per day.
     Dates: start: 201205
  2. ANDROGEL [Suspect]
     Dosage: 1 pump actuation per day.
     Dates: start: 201203, end: 201205
  3. MICARDIS [Concomitant]
     Indication: HYPERTENSION
  4. VITAMINS [Concomitant]
     Indication: PRODUCT USED FOR UNKNOWN INDICATION

REACTIONS (1)
  - Blood testosterone abnormal [Not Recovered/Not Resolved]
